FAERS Safety Report 4433075-4 (Version None)
Quarter: 2004Q3

REPORT INFORMATION
  Report Type: 
  Country: None (occurrence: None)
  Receive Date: 20040823
  Receipt Date: 20040812
  Transmission Date: 20050211
  Serious: Yes (Hospitalization)
  Sender: FDA-Public Use
  Company Number: 233937K04USA

PATIENT
  Age: 32 Year
  Sex: Male

DRUGS (3)
  1. REBIF [Suspect]
     Indication: MULTIPLE SCLEROSIS
     Dosage: 44 MCG,
     Dates: start: 20040218
  2. LEXAPRO [Concomitant]
  3. RISPERDAL [Concomitant]

REACTIONS (2)
  - INJECTION SITE ERYTHEMA [None]
  - MENTAL DISORDER [None]
